FAERS Safety Report 4485528-0 (Version None)
Quarter: 2004Q4

REPORT INFORMATION
  Report Type: 
  Country: None (occurrence: None)
  Receive Date: 20041021
  Receipt Date: 20041007
  Transmission Date: 20050328
  Serious: Yes (Hospitalization)
  Sender: FDA-Public Use
  Company Number: 8007573

PATIENT
  Age: 15 Year
  Sex: Female

DRUGS (2)
  1. LEVETIRACETAM [Suspect]
     Dosage: PO
     Route: 048
  2. LAMICTAL [Suspect]
     Indication: CONVULSION
     Dosage: 200 MG 2/D PO
     Route: 048
     Dates: start: 20030101

REACTIONS (5)
  - DIZZINESS [None]
  - GRAND MAL CONVULSION [None]
  - HEART RATE INCREASED [None]
  - NAUSEA [None]
  - VISION BLURRED [None]
